FAERS Safety Report 4833665-0 (Version None)
Quarter: 2005Q4

REPORT INFORMATION
  Report Type: 
  Country: None (occurrence: None)
  Receive Date: 20051116
  Receipt Date: 20051107
  Transmission Date: 20060501
  Serious: Yes (Hospitalization)
  Sender: FDA-Public Use
  Company Number: 2005-08-0857

PATIENT
  Age: 53 Year
  Sex: Male
  Weight: 64.8644 kg

DRUGS (10)
  1. PEG-INTRON [Suspect]
     Indication: HEPATITIS C
     Dosage: 96 MCG QWK SUBCUTANEOUS
     Route: 058
     Dates: start: 20050617, end: 20050722
  2. RIBAVIRIN [Suspect]
     Dosage: ORAL
     Route: 048
     Dates: start: 20050701
  3. SILDENAFIL CITRATE TABLETS [Concomitant]
  4. ANALGESIC (NOS) CREAM [Concomitant]
  5. HYDROXYZINE HYDROCHLORIDE TABLETS [Concomitant]
  6. DICLOFENAC SODIUM [Concomitant]
  7. BRIMONIDINE TARTRATE OPHTHALMIC SOLUTION [Concomitant]
  8. NICOTINE PATCH TOPICALS [Concomitant]
  9. NICOTINE PATCH TOPICALS [Concomitant]
  10. TRAVOPROST OPHTHALMIC SOLUTION [Concomitant]

REACTIONS (3)
  - MYCOBACTERIUM AVIUM COMPLEX INFECTION [None]
  - PNEUMONIA [None]
  - PULMONARY TUBERCULOSIS [None]
